FAERS Safety Report 8014706-9 (Version None)
Quarter: 2011Q4

REPORT INFORMATION
  Report Type: 
  Country: None (occurrence: None)
  Receive Date: 20111229
  Receipt Date: 20111220
  Transmission Date: 20120403
  Serious: Yes (Other)
  Sender: FDA-Public Use
  Company Number: US-ASTRAZENECA-2011SE66367

PATIENT
  Age: 76 Year
  Sex: Male

DRUGS (3)
  1. SEROQUEL [Concomitant]
     Route: 048
  2. TOPROL-XL [Suspect]
     Route: 048
  3. ACCOLATE [Concomitant]
     Route: 048

REACTIONS (1)
  - CEREBROVASCULAR ACCIDENT [None]
